FAERS Safety Report 10993825 (Version 1)
Quarter: 2015Q2

REPORT INFORMATION
  Report Type: Spontaneous
  Country: US (occurrence: None)
  Receive Date: 20150406
  Receipt Date: 20150406
  Transmission Date: 20150821
  Serious: Yes (Other)
  Sender: FDA-Public Use
  Company Number: None

PATIENT
  Age: 40 Year
  Sex: Male
  Weight: 68.04 kg

DRUGS (1)
  1. SULFAMETHOXAZOLE [Suspect]
     Active Substance: SULFAMETHOXAZOLE
     Indication: STAPHYLOCOCCAL INFECTION
     Dosage: 2 PILLS
     Route: 048
     Dates: start: 20150327, end: 20150404

REACTIONS (11)
  - Burning sensation [None]
  - Decreased appetite [None]
  - Arthralgia [None]
  - Frequent bowel movements [None]
  - Eye pain [None]
  - Abdominal discomfort [None]
  - Pruritus [None]
  - Diarrhoea [None]
  - Rash generalised [None]
  - Flatulence [None]
  - Fatigue [None]

NARRATIVE: CASE EVENT DATE: 20150327
